FAERS Safety Report 4418604-9 (Version None)
Quarter: 2004Q3

REPORT INFORMATION
  Report Type: 
  Country: None (occurrence: None)
  Receive Date: 20040809
  Receipt Date: 20030714
  Transmission Date: 20050211
  Serious: No
  Sender: FDA-Public Use
  Company Number: US-GLAXOSMITHKLINE-A0416910A

PATIENT
  Age: 44 Year
  Sex: Female
  Weight: 79.1 kg

DRUGS (7)
  1. PAXIL [Suspect]
     Indication: DRUG USE FOR UNKNOWN INDICATION
     Dosage: 20MG PER DAY
     Route: 048
     Dates: end: 20001201
  2. ULTRAM [Concomitant]
  3. FLEXERIL [Concomitant]
  4. TRAZODONE HCL [Concomitant]
  5. FLONASE [Concomitant]
     Route: 045
  6. PREMARIN [Concomitant]
     Dosage: .625U PER DAY
     Route: 065
  7. PRINIVIL [Concomitant]
     Dosage: 10U PER DAY
     Route: 065

REACTIONS (3)
  - ABDOMINAL DISCOMFORT [None]
  - CHEST PAIN [None]
  - NEUROPATHY PERIPHERAL [None]
